FAERS Safety Report 7275632-6 (Version None)
Quarter: 2011Q1

REPORT INFORMATION
  Report Type: 
  Country: None (occurrence: None)
  Receive Date: 20110202
  Receipt Date: 20110202
  Transmission Date: 20110831
  Serious: Yes (Hospitalization)
  Sender: FDA-Public Use
  Company Number: None

PATIENT
  Sex: Female
  Weight: 51.7 kg

DRUGS (3)
  1. CARBOPLATIN [Suspect]
     Dosage: 1127.6 MG
     Dates: end: 20101214
  2. ERBITUX [Suspect]
     Dosage: 1575 MG
     Dates: end: 20101227
  3. TAXOL [Suspect]
     Dosage: 600 MG
     Dates: end: 20101214

REACTIONS (6)
  - NEUTROPHIL COUNT DECREASED [None]
  - METASTASES TO SPINE [None]
  - METASTASES TO THORAX [None]
  - SPINAL CORD COMPRESSION [None]
  - HAEMOGLOBIN DECREASED [None]
  - NEOPLASM MALIGNANT [None]
